FAERS Safety Report 8980342 (Version 1)
Quarter: 2012Q4

REPORT INFORMATION
  Report Type: 
  Country: US (occurrence: US)
  Receive Date: 20121212
  Receipt Date: 20121212
  Transmission Date: 20130627
  Serious: Yes (Death)
  Sender: FDA-Public Use
  Company Number: US-ASTELLAS-CID000000002101195

PATIENT
  Sex: Female

DRUGS (11)
  1. TARCEVA [Suspect]
     Indication: BREAST CANCER FEMALE
     Route: 065
  2. TARCEVA [Suspect]
     Indication: METASTASES TO LIVER
  3. TAXOTERE [Concomitant]
     Route: 065
  4. HERCEPTIN [Concomitant]
     Route: 065
     Dates: start: 20041216, end: 2007
  5. ZOMETA [Concomitant]
     Route: 065
  6. NAVELBINE [Concomitant]
     Route: 065
     Dates: end: 20060503
  7. NAVELBINE [Concomitant]
     Route: 065
     Dates: start: 20060614
  8. NAVELBINE [Concomitant]
     Route: 065
     Dates: start: 200607
  9. GEMCITABINE [Concomitant]
     Route: 065
     Dates: start: 200607, end: 200609
  10. ABRAXANE [Concomitant]
     Route: 065
     Dates: start: 200607
  11. AVASTIN [Concomitant]
     Route: 065

REACTIONS (1)
  - Death [Fatal]
